FAERS Safety Report 4971049-5 (Version None)
Quarter: 2006Q2

REPORT INFORMATION
  Report Type: 
  Country: None (occurrence: None)
  Receive Date: 20060411
  Receipt Date: 20060411
  Transmission Date: 20061013
  Serious: Yes (Other)
  Sender: FDA-Public Use
  Company Number: None

PATIENT
  Age: 51 Year
  Sex: Female
  Weight: 50.3493 kg

DRUGS (10)
  1. KETEK [Suspect]
     Indication: SINUSITIS
     Dosage: 800MG QD PO
     Route: 048
     Dates: start: 20060301, end: 20060314
  2. TOPROL-XL [Concomitant]
  3. ASPIRIN [Concomitant]
  4. PILOCARPINE [Concomitant]
  5. VALIUM [Concomitant]
  6. CALCIUM-D [Concomitant]
  7. PROVATRIPTAN [Concomitant]
  8. FOSAMAX [Concomitant]
  9. CLONIDINE [Concomitant]
  10. PROTONIX [Concomitant]

REACTIONS (5)
  - ALANINE AMINOTRANSFERASE INCREASED [None]
  - ASPARTATE AMINOTRANSFERASE INCREASED [None]
  - HEADACHE [None]
  - NAUSEA [None]
  - PYREXIA [None]
